FAERS Safety Report 9362028 (Version 2)
Quarter: 2013Q2

REPORT INFORMATION
  Report Type: Spontaneous
  Country: US (occurrence: US)
  Receive Date: 20130621
  Receipt Date: 20130626
  Transmission Date: 20140414
  Serious: Yes (Other)
  Sender: FDA-Public Use
  Company Number: CHPA2013US010110

PATIENT
  Age: 76 Year
  Sex: Female

DRUGS (3)
  1. PERDIEM OVERNIGHT RELIEF PILLS [Suspect]
     Indication: CONSTIPATION
     Dosage: 4 TO 5 DF, QD
     Route: 048
  2. PERDIEM OVERNIGHT RELIEF PILLS [Suspect]
     Dosage: 1 TO 4 DF, QD
     Route: 048
  3. STOOL SOFTENER [Concomitant]
     Indication: FAECES HARD
     Dosage: UNK, QD
     Route: 048

REACTIONS (3)
  - Urinary tract infection [Recovered/Resolved]
  - Incorrect drug administration duration [Unknown]
  - Incorrect dose administered [Unknown]
